FAERS Safety Report 4352769-2 (Version None)
Quarter: 2004Q2

REPORT INFORMATION
  Report Type: 
  Country: None (occurrence: None)
  Receive Date: 20040504
  Receipt Date: 20040428
  Transmission Date: 20050107
  Serious: Yes (Other)
  Sender: FDA-Public Use
  Company Number: FI-ROCHE-365979

PATIENT
  Age: 66 Year
  Sex: Female

DRUGS (4)
  1. XENICAL [Suspect]
     Indication: OBESITY
     Route: 048
     Dates: start: 20040406, end: 20040415
  2. EMCONCOR [Concomitant]
     Indication: HYPERTENSION
     Route: 048
  3. PLENDIL [Concomitant]
     Indication: HYPERTENSION
     Route: 048
  4. ZOCOR [Concomitant]
     Route: 048

REACTIONS (1)
  - COLITIS [None]
